FAERS Safety Report 5418623-X (Version None)
Quarter: 2007Q3

REPORT INFORMATION
  Report Type: 
  Country: None (occurrence: None)
  Receive Date: 20070817
  Receipt Date: 20070807
  Transmission Date: 20080115
  Serious: Yes (Disabling, Other)
  Sender: FDA-Public Use
  Company Number: FR-PFIZER INC-2005161498

PATIENT
  Sex: Female
  Weight: 59 kg

DRUGS (8)
  1. NEURONTIN [Suspect]
     Indication: PAIN
     Dosage: TEXT:UP TO TWO GRAMS-FREQ:DAILY
     Dates: start: 20040401, end: 20040801
  2. LYRICA [Suspect]
     Indication: NEURALGIA
  3. KETAMINE HCL [Suspect]
     Indication: PAIN
  4. TRAMADOL HYDROCHLORIDE AND ACETAMINOPHEN [Suspect]
     Indication: PAIN
  5. EFFEXOR [Suspect]
     Indication: PAIN
  6. LEXOMIL [Concomitant]
     Indication: PAIN
  7. CLONAZEPAM [Concomitant]
  8. ASPEGIC 325 [Concomitant]
     Dosage: DAILY DOSE:75MG

REACTIONS (14)
  - DISTURBANCE IN ATTENTION [None]
  - DIZZINESS [None]
  - DRUG INEFFECTIVE [None]
  - FATIGUE [None]
  - IMPAIRED WORK ABILITY [None]
  - INTERVERTEBRAL DISC PROTRUSION [None]
  - MUSCLE SPASMS [None]
  - NEURALGIA [None]
  - NO THERAPEUTIC RESPONSE [None]
  - PALLOR [None]
  - SOMNOLENCE [None]
  - SUICIDAL IDEATION [None]
  - VERTIGO [None]
  - VISUAL ACUITY REDUCED [None]
